FAERS Safety Report 8592981-X (Version None)
Quarter: 2012Q3

REPORT INFORMATION
  Report Type: 
  Country: None (occurrence: None)
  Receive Date: 20120814
  Receipt Date: 19881212
  Transmission Date: 20120928
  Serious: Yes (Hospitalization)
  Sender: FDA-Public Use
  Company Number: US-ROCHE-1097921

PATIENT
  Age: 55 Year
  Sex: Female

DRUGS (1)
  1. ACTIVASE [Suspect]
     Indication: MYOCARDIAL INFARCTION

REACTIONS (4)
  - VENTRICULAR EXTRASYSTOLES [None]
  - PYREXIA [None]
  - CARDIAC MURMUR [None]
  - SINUS BRADYCARDIA [None]
